FAERS Safety Report 4605986-8 (Version None)
Quarter: 2005Q1

REPORT INFORMATION
  Report Type: 
  Country: None (occurrence: None)
  Receive Date: 20050311
  Receipt Date: 20041028
  Transmission Date: 20050727
  Serious: Yes (Life-Threatening, Hospitalization)
  Sender: FDA-Public Use
  Company Number: DE-GLAXOSMITHKLINE-D0045079A

PATIENT
  Age: 75 Year
  Sex: Female
  Weight: 110 kg

DRUGS (8)
  1. AVANDIA [Suspect]
     Dosage: 8MG PER DAY
     Route: 048
     Dates: start: 20020101, end: 20040101
  2. TEBONIN FORTE [Concomitant]
     Dosage: 1TAB PER DAY
     Route: 048
  3. ACARBOSE [Concomitant]
     Dosage: 50MG THREE TIMES PER DAY
     Route: 048
  4. AMARYL [Concomitant]
     Dosage: 1TAB PER DAY
     Route: 048
  5. OLMESARTAN MEDOXOMIL [Concomitant]
     Dosage: 5MG PER DAY
     Route: 048
  6. LEVOTHYROXINE SODIUM [Concomitant]
     Dosage: 75MG PER DAY
     Route: 048
  7. SPIRONOLACTONE [Concomitant]
     Dosage: 1TAB PER DAY
     Route: 048
  8. FUROSEMIDE [Concomitant]
     Dosage: 60MG PER DAY
     Route: 048

REACTIONS (6)
  - BREAST PAIN [None]
  - CARDIAC FAILURE [None]
  - DYSPNOEA [None]
  - OEDEMA [None]
  - PULMONARY OEDEMA [None]
  - URINARY TRACT INFECTION [None]
